FAERS Safety Report 4456341-5 (Version None)
Quarter: 2004Q3

REPORT INFORMATION
  Report Type: 
  Country: None (occurrence: None)
  Receive Date: 20040917
  Receipt Date: 20040831
  Transmission Date: 20050211
  Serious: Yes (Death)
  Sender: FDA-Public Use
  Company Number: GBS040715330

PATIENT
  Age: 68 Year
  Sex: Female
  Weight: 54 kg

DRUGS (14)
  1. XIGRIS [Suspect]
     Indication: SEPSIS
     Dosage: 24 UG/KG/HR
     Dates: start: 20040711, end: 20040714
  2. HEPARIN [Concomitant]
  3. AMIODARONE [Concomitant]
  4. LANSOPRAZOLE [Concomitant]
  5. COLOMYCIN (COLISTIN) [Concomitant]
  6. TAZOCIN [Concomitant]
  7. GENTAMYCIN SULFATE [Concomitant]
  8. ACETAMINOPHEN [Concomitant]
  9. OMEPRAZOLE [Concomitant]
  10. ENOXAPARIN SODIUM [Concomitant]
  11. HYDROCORTISONE [Concomitant]
  12. NOREPINEPHRINE [Concomitant]
  13. PITRESSIN (VASOPRESSIN INJECTION) [Concomitant]
  14. CLARITHROMYCIN [Concomitant]

REACTIONS (10)
  - ACTIVATED PARTIAL THROMBOPLASTIN TIME PROLONGED [None]
  - BRONCHOPNEUMONIA [None]
  - CEREBRAL HAEMATOMA [None]
  - CEREBRAL HAEMORRHAGE [None]
  - DEPRESSED LEVEL OF CONSCIOUSNESS [None]
  - HAEMODIALYSIS [None]
  - NERVOUS SYSTEM DISORDER [None]
  - PLATELET COUNT DECREASED [None]
  - PROTHROMBIN TIME PROLONGED [None]
  - RENAL FAILURE [None]
